FAERS Safety Report 4333744-0 (Version None)
Quarter: 2004Q2

REPORT INFORMATION
  Report Type: 
  Country: None (occurrence: None)
  Receive Date: 20040402
  Receipt Date: 20040324
  Transmission Date: 20050107
  Serious: Yes (Other)
  Sender: FDA-Public Use
  Company Number: 2004020133

PATIENT
  Age: 34 Year
  Sex: Female
  Weight: 49.8957 kg

DRUGS (1)
  1. NEURONTIN [Suspect]
     Indication: PAIN
     Dates: start: 20030101

REACTIONS (3)
  - IMPAIRED DRIVING ABILITY [None]
  - VISUAL ACUITY REDUCED [None]
  - VISUAL DISTURBANCE [None]
